FAERS Safety Report 4505472-X (Version None)
Quarter: 2004Q4

REPORT INFORMATION
  Report Type: 
  Country: None (occurrence: None)
  Receive Date: 20041118
  Receipt Date: 20041118
  Transmission Date: 20050328
  Serious: Yes (Hospitalization)
  Sender: FDA-Public Use
  Company Number: None

PATIENT
  Age: 79 Year
  Sex: Female
  Weight: 51.3 kg

DRUGS (10)
  1. BACTRIM DS [Suspect]
     Dosage: 1 TAB QD PO
     Route: 048
  2. I CARC-C PLUS [Concomitant]
  3. LIBRAX [Concomitant]
  4. PERIACTIN [Concomitant]
  5. DITROPAN XL [Concomitant]
  6. ZERTEC [Concomitant]
  7. CIPRO [Concomitant]
  8. ASPIRIN [Concomitant]
  9. ALBUTEROL [Concomitant]
  10. LORTUSSON [Concomitant]

REACTIONS (2)
  - PYREXIA [None]
  - RASH [None]
